FAERS Safety Report 8372684-7 (Version None)
Quarter: 2012Q2

REPORT INFORMATION
  Report Type: 
  Country: None (occurrence: None)
  Receive Date: 20120521
  Receipt Date: 20120509
  Transmission Date: 20120825
  Serious: Yes (Death, Life-Threatening, Other)
  Sender: FDA-Public Use
  Company Number: JP-MPIJNJ-2012-03083

PATIENT

DRUGS (9)
  1. VELCADE [Suspect]
     Indication: RENAL AMYLOIDOSIS
  2. AMIODARONE HYDROCHLORIDE [Concomitant]
     Dosage: UNK
     Route: 048
     Dates: end: 20120331
  3. VELCADE [Suspect]
     Indication: MULTIPLE MYELOMA
     Dosage: UNK
     Route: 042
     Dates: start: 20120316, end: 20120419
  4. LOSARTAN POTASSIUM [Concomitant]
     Dosage: UNK
     Route: 048
     Dates: end: 20120331
  5. CARVEDILOL [Concomitant]
     Dosage: UNK
     Route: 048
     Dates: end: 20120331
  6. TRICHLORMETHIAZIDE [Concomitant]
     Dosage: UNK
     Route: 048
     Dates: end: 20120331
  7. VELCADE [Suspect]
     Indication: CARDIAC AMYLOIDOSIS
  8. FUROSEMIDE [Concomitant]
     Dosage: UNK
     Route: 048
     Dates: end: 20120331
  9. EPLERENONE [Concomitant]
     Dosage: UNK
     Route: 048
     Dates: end: 20120331

REACTIONS (4)
  - STAPHYLOCOCCAL SEPSIS [None]
  - CARDIAC AMYLOIDOSIS [None]
  - DEPRESSED LEVEL OF CONSCIOUSNESS [None]
  - CARDIAC FAILURE [None]
